FAERS Safety Report 5503232-4 (Version None)
Quarter: 2007Q4

REPORT INFORMATION
  Report Type: 
  Country: None (occurrence: None)
  Receive Date: 20071031
  Receipt Date: 20071022
  Transmission Date: 20080405
  Serious: Yes (Hospitalization)
  Sender: FDA-Public Use
  Company Number: US-PFIZER INC-2006108042

PATIENT
  Sex: Female
  Weight: 56.2 kg

DRUGS (8)
  1. SUTENT [Suspect]
     Indication: BREAST CANCER
     Route: 048
  2. PACLITAXEL [Suspect]
     Indication: BREAST CANCER
     Route: 042
  3. PROCRIT [Concomitant]
     Dosage: DAILY DOSE:40000I.U.
     Route: 058
     Dates: start: 20060829, end: 20060829
  4. PROCRIT [Concomitant]
     Dosage: DAILY DOSE:40000I.U.
     Route: 058
     Dates: start: 20060905, end: 20060905
  5. SENOKOT [Concomitant]
     Dosage: TEXT:4 TABLETS
     Route: 048
     Dates: start: 20060418, end: 20060828
  6. PRILOSEC [Concomitant]
     Dosage: DAILY DOSE:20MG
     Route: 048
     Dates: start: 20060829, end: 20060905
  7. MOTRIN [Concomitant]
     Dosage: DAILY DOSE:800MG
     Route: 048
     Dates: start: 20060829, end: 20060905
  8. LYRICA [Concomitant]
     Dosage: DAILY DOSE:50MG
     Route: 048

REACTIONS (1)
  - CELLULITIS [None]
